FAERS Safety Report 6788011-2 (Version None)
Quarter: 2010Q2

REPORT INFORMATION
  Report Type: 
  Country: None (occurrence: None)
  Receive Date: 20100623
  Receipt Date: 20071204
  Transmission Date: 20101027
  Serious: No
  Sender: FDA-Public Use
  Company Number: US-PFIZER INC-2007095144

PATIENT
  Sex: Female
  Weight: 65.9 kg

DRUGS (3)
  1. AROMASIN [Suspect]
     Indication: BREAST CANCER
     Route: 048
     Dates: start: 20070821
  2. FOSAMAX [Concomitant]
  3. ANASTROZOLE [Concomitant]
     Indication: BREAST CANCER

REACTIONS (2)
  - INCREASED APPETITE [None]
  - WEIGHT INCREASED [None]
